FAERS Safety Report 10406966 (Version 3)
Quarter: 2015Q1

REPORT INFORMATION
  Report Type: Spontaneous
  Country: US (occurrence: US)
  Receive Date: 20140825
  Receipt Date: 20150108
  Transmission Date: 20150720
  Serious: No
  Sender: FDA-Public Use
  Company Number: US-ROXANE LABORATORIES, INC.-2014-RO-01268RO

PATIENT
  Sex: Female

DRUGS (1)
  1. MEPERIDINE [Suspect]
     Active Substance: MEPERIDINE
     Indication: PAIN
     Route: 065

REACTIONS (2)
  - Throat irritation [Recovered/Resolved]
  - Product quality issue [Unknown]
